FAERS Safety Report 12433654 (Version 2)
Quarter: 2016Q3

REPORT INFORMATION
  Report Type: Report from Study
  Country: BR (occurrence: BR)
  Receive Date: 20160603
  Receipt Date: 20160823
  Transmission Date: 20161109
  Serious: Yes (Life-Threatening, Hospitalization, Other)
  Sender: FDA-Public Use
  Company Number: BR-JNJFOC-20160524241

PATIENT
  Sex: Male

DRUGS (3)
  1. REMICADE [Suspect]
     Active Substance: INFLIXIMAB
     Indication: CROHN^S DISEASE
     Route: 042
  2. SULFASALAZINE. [Concomitant]
     Active Substance: SULFASALAZINE
     Route: 065
  3. REMICADE [Suspect]
     Active Substance: INFLIXIMAB
     Indication: CROHN^S DISEASE
     Route: 042
     Dates: start: 2011, end: 2012

REACTIONS (9)
  - Syncope [Unknown]
  - Arrhythmia [Unknown]
  - Decreased immune responsiveness [Unknown]
  - Crohn^s disease [Unknown]
  - Hypertension [Unknown]
  - Vomiting [Unknown]
  - Diabetes mellitus [Unknown]
  - Tremor [Unknown]
  - Seizure [Unknown]

NARRATIVE: CASE EVENT DATE: 2009
